FAERS Safety Report 10359575 (Version 1)
Quarter: 2014Q3

REPORT INFORMATION
  Report Type: Spontaneous
  Country: US (occurrence: US)
  Receive Date: 20140804
  Receipt Date: 20140804
  Transmission Date: 20150326
  Serious: No
  Sender: FDA-Public Use
  Company Number: US-BAYER-2014-115588

PATIENT
  Age: 48 Year
  Sex: Female
  Weight: 77.98 kg

DRUGS (1)
  1. ALEVE [Suspect]
     Active Substance: NAPROXEN SODIUM
     Indication: PAIN
     Dosage: 1-2 DF, UKN
     Route: 048
     Dates: start: 2012

REACTIONS (3)
  - Drug ineffective [None]
  - Extra dose administered [None]
  - Intentional product misuse [None]

NARRATIVE: CASE EVENT DATE: 20140724
